FAERS Safety Report 18807520 (Version 1)
Quarter: 2021Q1

REPORT INFORMATION
  Report Type: Spontaneous
  Country: US (occurrence: US)
  Receive Date: 20210129
  Receipt Date: 20210129
  Transmission Date: 20210419
  Serious: Yes (Other)
  Sender: FDA-Public Use
  Company Number: None

PATIENT
  Age: 32 Year
  Sex: Female
  Weight: 46.5 kg

DRUGS (4)
  1. INJECTAFER [Suspect]
     Active Substance: FERRIC CARBOXYMALTOSE
     Indication: IRON DEFICIENCY ANAEMIA
     Dosage: ?          OTHER FREQUENCY:IV INFUSION;?
     Route: 041
     Dates: start: 20210128, end: 20210128
  2. DIPHENHYDRAMINE. [Concomitant]
     Active Substance: DIPHENHYDRAMINE
     Dates: start: 20210128, end: 20210128
  3. 0.9% SODIUM CHLORIDE INFUSION [Concomitant]
     Dates: start: 20210128
  4. INJECTAFER [Suspect]
     Active Substance: FERRIC CARBOXYMALTOSE
     Indication: CROHN^S DISEASE
     Dosage: ?          OTHER FREQUENCY:IV INFUSION;?
     Route: 041
     Dates: start: 20210128, end: 20210128

REACTIONS (5)
  - Incorrect drug administration rate [None]
  - Feeling abnormal [None]
  - Oropharyngeal discomfort [None]
  - Infusion related reaction [None]
  - Chest discomfort [None]

NARRATIVE: CASE EVENT DATE: 20210128
